FAERS Safety Report 10278573 (Version 2)
Quarter: 2015Q4

REPORT INFORMATION
  Report Type: Spontaneous
  Country: US (occurrence: US)
  Receive Date: 20140704
  Receipt Date: 20151228
  Transmission Date: 20160304
  Serious: Yes (Hospitalization)
  Sender: FDA-Public Use
  Company Number: US-BRISTOL-MYERS SQUIBB COMPANY-21109509

PATIENT
  Age: 63 Year
  Sex: Female
  Weight: 66.21 kg

DRUGS (6)
  1. NOVOLOG [Concomitant]
     Active Substance: INSULIN ASPART
     Indication: PRODUCT USED FOR UNKNOWN INDICATION
     Dosage: 1 DF= 8 UNITS TO 18 UNITS, FAST ACTING.
     Route: 065
  2. LANTUS [Concomitant]
     Active Substance: INSULIN GLARGINE
     Indication: PRODUCT USED FOR UNKNOWN INDICATION
     Dosage: 1 DF=35 UNITS, LANTUS LONG-ACTING INSULIN
     Route: 065
  3. LYRICA [Concomitant]
     Active Substance: PREGABALIN
     Indication: PAIN
     Dosage: 75 MG, BID
     Route: 065
  4. TRICOR [Concomitant]
     Active Substance: FENOFIBRATE
     Indication: BLOOD TRIGLYCERIDES INCREASED
     Dosage: 145 MG, QD
     Route: 065
  5. PLAQUENIL [Concomitant]
     Active Substance: HYDROXYCHLOROQUINE SULFATE
     Indication: RHEUMATOID ARTHRITIS
     Route: 065
  6. ABATACEPT [Suspect]
     Active Substance: ABATACEPT
     Indication: RHEUMATOID ARTHRITIS
     Dosage: ABATACEPT THERAPY FROM 31-MAR-2014 TO 12-MAY-2014. LAST DOSE OF ORENCIA WAS ON 17JUN2014
     Route: 058
     Dates: start: 2013

REACTIONS (6)
  - Weight decreased [Unknown]
  - Drug dose omission [Unknown]
  - Asthenia [Unknown]
  - Blood glucose decreased [Unknown]
  - Arthropathy [Unknown]
  - Dizziness [Unknown]

NARRATIVE: CASE EVENT DATE: 20140514
